FAERS Safety Report 9610913 (Version 1)
Quarter: 2013Q4

REPORT INFORMATION
  Report Type: Spontaneous
  Country: US (occurrence: US)
  Receive Date: 20131009
  Receipt Date: 20131009
  Transmission Date: 20140711
  Serious: Yes (Hospitalization, Other)
  Sender: FDA-Public Use
  Company Number: US-ELI_LILLY_AND_COMPANY-US201310002036

PATIENT
  Sex: Male

DRUGS (6)
  1. HUMULIN NPH [Suspect]
     Indication: TYPE 1 DIABETES MELLITUS
     Dosage: UNK
     Dates: start: 2008, end: 201301
  2. HUMULIN 30% REGULAR, 70% NPH [Suspect]
     Indication: TYPE 1 DIABETES MELLITUS
     Dosage: 30 U, EACH MORNING
     Dates: start: 201301
  3. HUMULIN 30% REGULAR, 70% NPH [Suspect]
     Dosage: 40 U, EACH MORNING
     Dates: start: 201301
  4. HUMULIN 30% REGULAR, 70% NPH [Suspect]
     Dosage: UNK, EACH EVENING
     Dates: start: 201301
  5. INSULIN HUMAN [Suspect]
     Indication: TYPE 1 DIABETES MELLITUS
     Dosage: 5 U, EACH EVENING
  6. INSULIN HUMAN [Suspect]
     Dosage: 10 U, EACH EVENING

REACTIONS (5)
  - Incoherent [Recovered/Resolved]
  - Pneumonia [Unknown]
  - Blood glucose decreased [Recovered/Resolved]
  - Blood glucose increased [Unknown]
  - Blood glucose decreased [Unknown]
